FAERS Safety Report 20722445 (Version 1)
Quarter: 2022Q2

REPORT INFORMATION
  Report Type: Spontaneous
  Country: US (occurrence: US)
  Receive Date: 20220418
  Receipt Date: 20220418
  Transmission Date: 20220720
  Serious: Yes (Death, Other)
  Sender: FDA-Public Use
  Company Number: US-GW PHARMA-2022-US-012572

PATIENT
  Age: 6 Year
  Sex: Female
  Weight: 19.8 kg

DRUGS (1)
  1. EPIDIOLEX [Suspect]
     Active Substance: CANNABIDIOL
     Indication: Product used for unknown indication
     Dosage: 0.7ML, BID
     Route: 048
     Dates: start: 20210512

REACTIONS (1)
  - Death [Fatal]

NARRATIVE: CASE EVENT DATE: 20211008
